FAERS Safety Report 24136082 (Version 3)
Quarter: 2024Q3

REPORT INFORMATION
  Report Type: Report from Study
  Country: KR (occurrence: KR)
  Receive Date: 20240725
  Receipt Date: 20240808
  Transmission Date: 20241016
  Serious: Yes (Hospitalization)
  Sender: UNKNOWN
  Company Number: KR-ROCHE-10000014100

PATIENT

DRUGS (9)
  1. PRALSETINIB [Suspect]
     Active Substance: PRALSETINIB
     Indication: Non-small cell lung cancer
     Dosage: 400 MILLIGRAM, QD
     Route: 048
     Dates: start: 20210924, end: 20220620
  2. PRALSETINIB [Suspect]
     Active Substance: PRALSETINIB
     Dosage: 300 MILLIGRAM, QD
     Route: 048
     Dates: start: 20220707
  3. REBAMIPIDE [Concomitant]
     Active Substance: REBAMIPIDE
     Indication: Prophylaxis
     Dosage: 100 MILLIGRAM, TID
     Dates: start: 20210830
  4. IMIPRAMINE [Concomitant]
     Active Substance: IMIPRAMINE
     Indication: Prophylaxis
     Dosage: 25 MILLIGRAM, QD
     Dates: start: 20210714
  5. MIRABEGRON [Concomitant]
     Active Substance: MIRABEGRON
     Indication: Prophylaxis
     Dosage: 50 MILLIGRAM, QD
     Dates: start: 20210714
  6. LOPERAMIDE [Concomitant]
     Active Substance: LOPERAMIDE
     Indication: Prophylaxis against diarrhoea
     Dosage: 2 MILLIGRAM, 1 IN 1 AS NECESSARY
     Route: 048
     Dates: start: 20211202
  7. ACETAMINOPHEN [Concomitant]
     Active Substance: ACETAMINOPHEN
     Indication: Prophylaxis
     Dosage: 1 DOSAGE FORM, 1 IN 1 AS NECESSARY
     Dates: start: 20211202
  8. THEOBROMINE [Concomitant]
     Active Substance: THEOBROMINE
     Indication: Prophylaxis
     Dosage: 300 MILLIGRAM, 1 IN 1 AS NECESSARY
     Route: 048
     Dates: start: 20211209
  9. AMBROXOL [Concomitant]
     Active Substance: AMBROXOL
     Indication: Product used for unknown indication
     Dosage: 30 MILLIGRAM, 1 IN 1 AS NECESSARY
     Route: 048
     Dates: start: 20211209

REACTIONS (3)
  - Haematuria [Recovered/Resolved]
  - Anaemia [Recovering/Resolving]
  - Pneumonitis [Recovering/Resolving]

NARRATIVE: CASE EVENT DATE: 20230802
